FAERS Safety Report 17638923 (Version 1)
Quarter: 2020Q2

REPORT INFORMATION
  Report Type: Spontaneous
  Country: US (occurrence: US)
  Receive Date: 20200407
  Receipt Date: 20200407
  Transmission Date: 20200713
  Serious: Yes (Hospitalization, Other)
  Sender: FDA-Public Use
  Company Number: US-NAPPMUNDI-USA-2020-0150906

PATIENT
  Age: 63 Year
  Sex: Male

DRUGS (4)
  1. METHADONE [Suspect]
     Active Substance: METHADONE HYDROCHLORIDE
     Indication: PAIN
     Dosage: 10 MG, QID
     Route: 048
     Dates: start: 2010
  2. BC HEADACHE /00110301/ [Suspect]
     Active Substance: ASPIRIN\CAFFEINE\SALICYLAMIDE
     Indication: HEADACHE
     Route: 048
  3. OXYCODONE HYDROCHLORIDE (SIMILAR TO NDA 22-272) [Suspect]
     Active Substance: OXYCODONE HYDROCHLORIDE
     Indication: PAIN
     Dosage: 30 MG, TID
     Route: 048
     Dates: start: 2010
  4. MORPHINE SULFATE (SIMILAR TO NDA 19-516) [Suspect]
     Active Substance: MORPHINE SULFATE
     Indication: PAIN
     Dosage: UNK
     Route: 048
     Dates: start: 20200210, end: 20200213

REACTIONS (13)
  - Haematochezia [Not Recovered/Not Resolved]
  - Nephrolithiasis [Unknown]
  - Headache [Unknown]
  - Dizziness [Not Recovered/Not Resolved]
  - Fall [Unknown]
  - Transfusion [Not Recovered/Not Resolved]
  - Gastric ulcer haemorrhage [Not Recovered/Not Resolved]
  - Loss of consciousness [Unknown]
  - Tendon rupture [Unknown]
  - Calculus bladder [Unknown]
  - Anaemia [Unknown]
  - Drug ineffective [Recovered/Resolved]
  - Staphylococcal infection [Recovered/Resolved]

NARRATIVE: CASE EVENT DATE: 2011
